FAERS Safety Report 26140819 (Version 2)
Quarter: 2025Q4

REPORT INFORMATION
  Report Type: Spontaneous
  Country: JP (occurrence: JP)
  Receive Date: 20251210
  Receipt Date: 20251223
  Transmission Date: 20260117
  Serious: Yes (Hospitalization, Other)
  Sender: TAKEDA
  Company Number: JP-TAKEDA-2025TUS111088

PATIENT
  Age: 43 Year
  Sex: Male

DRUGS (2)
  1. LIALDA [Suspect]
     Active Substance: MESALAMINE
     Indication: Colitis ulcerative
     Dosage: 4800 MILLIGRAM, QD
  2. LIALDA [Suspect]
     Active Substance: MESALAMINE
     Dosage: 2400 MILLIGRAM, Q12H

REACTIONS (4)
  - Colitis ulcerative [Unknown]
  - Product residue present [Unknown]
  - Inappropriate schedule of product administration [Unknown]
  - Drug eruption [Unknown]
